FAERS Safety Report 8775290 (Version 2)
Quarter: 2013Q2

REPORT INFORMATION
  Report Type: Spontaneous
  Country: US (occurrence: US)
  Receive Date: 20120910
  Receipt Date: 20130503
  Transmission Date: 20140414
  Serious: No
  Sender: FDA-Public Use
  Company Number: US-PFIZER INC-2012219947

PATIENT
  Sex: Female

DRUGS (1)
  1. CELEBREX [Suspect]
     Dosage: UNK
     Dates: start: 20101103, end: 20130429

REACTIONS (3)
  - Blood pressure increased [Unknown]
  - Abdominal discomfort [Unknown]
  - Limb injury [Unknown]
